FAERS Safety Report 5740568-6 (Version None)
Quarter: 2008Q2

REPORT INFORMATION
  Report Type: 
  Country: None (occurrence: None)
  Receive Date: 20080516
  Receipt Date: 20080508
  Transmission Date: 20081010
  Serious: Yes (Life-Threatening, Hospitalization)
  Sender: FDA-Public Use
  Company Number: DE-ROCHE-554181

PATIENT
  Sex: Female

DRUGS (2)
  1. BONIVA [Suspect]
     Route: 048
     Dates: start: 20080123, end: 20080318
  2. XELODA [Suspect]
     Dosage: GIVEN IN TWO DAILY DOSES ON DAYS ONE TO FOURTEEN EVERY THREE WEEKS.
     Route: 048
     Dates: start: 20080123, end: 20080318

REACTIONS (2)
  - PULMONARY EMBOLISM [None]
  - STOMACH DISCOMFORT [None]
